FAERS Safety Report 16299556 (Version 2)
Quarter: 2019Q2

REPORT INFORMATION
  Report Type: Other
  Country: CA (occurrence: CA)
  Receive Date: 20190510
  Receipt Date: 20190606
  Transmission Date: 20190711
  Serious: Yes (Other)
  Sender: FDA-Public Use
  Company Number: CA-APOTEX-2019AP013339

PATIENT
  Age: 42 Year
  Sex: Male

DRUGS (4)
  1. COSENTYX [Suspect]
     Active Substance: SECUKINUMAB
     Dosage: 300 MG, Q.WK.
     Route: 058
  2. SERTRALINE [Suspect]
     Active Substance: SERTRALINE HYDROCHLORIDE
     Indication: ANXIETY
     Dosage: UNK
     Route: 065
  3. COSENTYX [Suspect]
     Active Substance: SECUKINUMAB
     Indication: PSORIASIS
     Dosage: 300 MG, Q.M.T.
     Route: 058
  4. ACITRETIN. [Concomitant]
     Active Substance: ACITRETIN
     Indication: PRODUCT USED FOR UNKNOWN INDICATION
     Dosage: UNK
     Route: 065

REACTIONS (16)
  - Fluid retention [Recovering/Resolving]
  - Rash [Recovering/Resolving]
  - Waist circumference increased [Recovering/Resolving]
  - Insomnia [Recovering/Resolving]
  - Somnolence [Recovering/Resolving]
  - Therapeutic product effect incomplete [Recovering/Resolving]
  - Vitamin D decreased [Recovering/Resolving]
  - Peripheral swelling [Recovering/Resolving]
  - Swelling [Recovering/Resolving]
  - Eyelid ptosis [Recovering/Resolving]
  - Post procedural swelling [Recovering/Resolving]
  - Hydrocele [Recovering/Resolving]
  - Impaired healing [Recovering/Resolving]
  - Psoriasis [Recovering/Resolving]
  - Oedema peripheral [Recovering/Resolving]
  - Weight increased [Recovering/Resolving]
